FAERS Safety Report 9485761 (Version 1)
Quarter: 2013Q3

REPORT INFORMATION
  Report Type: Spontaneous
  Country: US (occurrence: None)
  Receive Date: 20130821
  Receipt Date: 20130821
  Transmission Date: 20140515
  Serious: Yes (Hospitalization)
  Sender: FDA-Public Use
  Company Number: 2013-3273

PATIENT
  Age: 62 Year
  Sex: Male
  Weight: 125 kg

DRUGS (6)
  1. SOMATULINE DEPOT [Suspect]
     Indication: ACROMEGALY
     Dosage: 1 IN 28 DAYS
     Dates: start: 2011
  2. ASPIRIN (ACETYLSALICYLIC ACID) [Concomitant]
  3. TESTOSTERONE (TESTOSTERONE PROPIONATE) [Concomitant]
  4. COREG (CARVEDILOL) [Concomitant]
  5. HYDRALAZINE (HYDRALAZINE) [Concomitant]
  6. CELEBREX (CELECOXIB) [Concomitant]

REACTIONS (12)
  - Shoulder arthroplasty [None]
  - Cardiac failure congestive [None]
  - Chest discomfort [None]
  - Chest discomfort [None]
  - Diarrhoea [None]
  - Injection site scar [None]
  - Injection site haemorrhage [None]
  - Heart rate decreased [None]
  - Wrong technique in drug usage process [None]
  - Skin disorder [None]
  - Fatigue [None]
  - Dyspnoea [None]
